FAERS Safety Report 8171686-3 (Version None)
Quarter: 2012Q1

REPORT INFORMATION
  Report Type: 
  Country: None (occurrence: None)
  Receive Date: 20120228
  Receipt Date: 20120223
  Transmission Date: 20120608
  Serious: Yes (Death)
  Sender: FDA-Public Use
  Company Number: FR-ROXANE LABORATORIES, INC.-2012-RO-00710RO

PATIENT
  Age: 75 Year

DRUGS (3)
  1. FOLIC ACID [Suspect]
     Indication: VITAMIN SUPPLEMENTATION
  2. METHOTREXATE [Suspect]
     Indication: PEMPHIGOID
  3. SUPERPOTENT TOPICAL STEROID [Concomitant]
     Indication: PEMPHIGOID
     Route: 061

REACTIONS (1)
  - GASTROINTESTINAL HAEMORRHAGE [None]
